FAERS Safety Report 4273000-2 (Version None)
Quarter: 2004Q1

REPORT INFORMATION
  Report Type: 
  Country: None (occurrence: None)
  Receive Date: 20040114
  Receipt Date: 20040107
  Transmission Date: 20041129
  Serious: Yes (Other)
  Sender: FDA-Public Use
  Company Number: 2004192767GB

PATIENT
  Age: 42 Year
  Sex: Male

DRUGS (2)
  1. SALAZOPYRIN (SULFASAZINE) TABLET [Suspect]
     Indication: ARTHRITIS
     Dosage: 500 MG, BID, ORAL
     Route: 048
  2. NAPROXEN [Concomitant]

REACTIONS (2)
  - LIBIDO DECREASED [None]
  - NEUTROPENIA [None]
